FAERS Safety Report 7682498-9 (Version None)
Quarter: 2011Q3

REPORT INFORMATION
  Report Type: 
  Country: None (occurrence: None)
  Receive Date: 20110815
  Receipt Date: 20110805
  Transmission Date: 20111222
  Serious: Yes (Other)
  Sender: FDA-Public Use
  Company Number: PHHY2011IT70522

PATIENT
  Sex: Male

DRUGS (3)
  1. ELIGARD [Concomitant]
  2. EULEXIN [Concomitant]
     Dosage: 750 MG, UNK
  3. ZOMETA [Suspect]
     Indication: METASTASES TO BONE

REACTIONS (1)
  - OSTEONECROSIS OF JAW [None]
